FAERS Safety Report 8474339-7 (Version None)
Quarter: 2012Q2

REPORT INFORMATION
  Report Type: 
  Country: None (occurrence: None)
  Receive Date: 20120628
  Receipt Date: 20120620
  Transmission Date: 20120825
  Serious: Yes (Other)
  Sender: FDA-Public Use
  Company Number: US-JNJFOC-20120601845

PATIENT

DRUGS (3)
  1. OXYCONTIN [Concomitant]
     Indication: BREAKTHROUGH PAIN
     Route: 065
  2. BETA-BLOCKER, NOS [Interacting]
     Indication: BLOOD PRESSURE
     Route: 065
  3. NUCYNTA [Suspect]
     Indication: PAIN
     Route: 048

REACTIONS (7)
  - MIGRAINE [None]
  - PALPITATIONS [None]
  - BREAKTHROUGH PAIN [None]
  - DRUG INTERACTION [None]
  - INSOMNIA [None]
  - COMPLEX REGIONAL PAIN SYNDROME [None]
  - OEDEMA PERIPHERAL [None]
